FAERS Safety Report 5663669-X (Version None)
Quarter: 2008Q1

REPORT INFORMATION
  Report Type: 
  Country: None (occurrence: None)
  Receive Date: 20080310
  Receipt Date: 20080221
  Transmission Date: 20080703
  Serious: Yes (Other)
  Sender: FDA-Public Use
  Company Number: 2007JP005544

PATIENT
  Sex: Female
  Weight: 38.8 kg

DRUGS (23)
  1. TACROLIMUS [Suspect]
     Indication: RHEUMATOID ARTHRITIS
     Dosage: 1 MG, UID/QD, ORAL; 1.5 MG, UID/QD, ORAL
     Route: 048
     Dates: start: 20061214, end: 20061224
  2. TACROLIMUS [Suspect]
     Indication: RHEUMATOID ARTHRITIS
     Dosage: 1 MG, UID/QD, ORAL; 1.5 MG, UID/QD, ORAL
     Route: 048
     Dates: start: 20061225
  3. RHEUMATREX [Suspect]
     Indication: RHEUMATOID ARTHRITIS
     Dosage: 4 MG, WEEKLY, ORAL
     Route: 048
     Dates: start: 20070111, end: 20070131
  4. LEVOFLOXACIN [Suspect]
     Indication: INFECTION
     Dosage: 33.3 MG, TID, ORAL
     Route: 048
     Dates: start: 20070119, end: 20070125
  5. AMPICILLIN SODIUM W/SULBACTAM SODIUM(AMPICILLIN SODIUM, SULBACTAM SODI [Suspect]
     Indication: INFECTION
     Dates: start: 20070124, end: 20070128
  6. AZULFIDINE [Suspect]
     Indication: RHEUMATOID ARTHRITIS
     Dosage: 500 MG, BID, ORAL
     Route: 048
     Dates: start: 20061208, end: 20061220
  7. PREDNISOLONE TAB [Concomitant]
  8. MOBIC [Concomitant]
  9. LOXONIN (LOXOPROFEN) TABLET [Concomitant]
  10. GASTER D ORODISPERSIBLE CR TABLET [Concomitant]
  11. ZOLPIDEM TARTRATE [Concomitant]
  12. DEPAS (ETIZOLAM) TABLET [Concomitant]
  13. MARZULENE (SODIUM GUALENATE) TABLET [Concomitant]
  14. BONALON (ALENDRONIC ACID) TABLET [Concomitant]
  15. MERCAZOLE (THIAMAZOLE) TABLET [Concomitant]
  16. PENTAGIN (PENTAZOCINE) TABLET [Concomitant]
  17. CYTOTEC [Concomitant]
  18. FOLIAMIN (FOLIC ACID) TABLET [Concomitant]
  19. FLAVERIC (BENPROPERINE PHOSPHATE) TABLET [Concomitant]
  20. MUCOSOLVAN (AMBROXOL) TABLET [Concomitant]
  21. ALFAROL (ALFACALCIDOL) TABLET [Concomitant]
  22. NICHICODE POWDER [Concomitant]
  23. ULCERLMIN (SUCRALFATE) LIQUID (EXTERNAL USE) [Concomitant]

REACTIONS (4)
  - BRONCHITIS [None]
  - PSEUDOMEMBRANOUS COLITIS [None]
  - PYREXIA [None]
  - RASH [None]
